FAERS Safety Report 21979596 (Version 2)
Quarter: 2023Q1

REPORT INFORMATION
  Report Type: Spontaneous
  Country: TW (occurrence: TW)
  Receive Date: 20230210
  Receipt Date: 20230223
  Transmission Date: 20230417
  Serious: Yes (Hospitalization, Other)
  Sender: FDA-Public Use
  Company Number: TW-BAYER-2023A014857

PATIENT
  Age: 64 Year
  Sex: Male

DRUGS (2)
  1. XOFIGO [Suspect]
     Active Substance: RADIUM RA-223 DICHLORIDE
     Dosage: UNK, ONCE, FIRST INJECTION
     Dates: start: 20220901, end: 20220901
  2. XOFIGO [Suspect]
     Active Substance: RADIUM RA-223 DICHLORIDE
     Dosage: UNK, ONCE, FIFTH INJECTION
     Dates: start: 20221223, end: 20221223

REACTIONS (3)
  - Fatigue [None]
  - Blood test abnormal [None]
  - Metastases to central nervous system [None]

NARRATIVE: CASE EVENT DATE: 20230104
